FAERS Safety Report 21271852 (Version 1)
Quarter: 2022Q3

REPORT INFORMATION
  Report Type: Report from Study
  Country: US (occurrence: US)
  Receive Date: 20220830
  Receipt Date: 20220830
  Transmission Date: 20221027
  Serious: Yes (Other)
  Sender: FDA-Public Use
  Company Number: US-ABBVIE-22K-163-4519817-00

PATIENT
  Weight: 65.2 kg

DRUGS (20)
  1. VENCLEXTA [Suspect]
     Active Substance: VENETOCLAX
     Indication: Plasma cell myeloma in remission
     Route: 048
  2. ALBUTEROL SULFATE [Concomitant]
     Active Substance: ALBUTEROL SULFATE
     Indication: Product used for unknown indication
     Dosage: 90 MCG/ACTUATION INHALER. EVERY FOUR-SIX HOURS AS NEEDED
     Dates: start: 20210331
  3. XANAX [Concomitant]
     Active Substance: ALPRAZOLAM
     Indication: Anxiety
     Dosage: ONE TABLET THREE TIMES A DAILY AS NEEDED
     Route: 048
     Dates: start: 20210330
  4. LIPITOR [Concomitant]
     Active Substance: ATORVASTATIN CALCIUM
     Indication: Product used for unknown indication
     Route: 048
     Dates: start: 20220627
  5. FLEXERIL [Concomitant]
     Active Substance: CYCLOBENZAPRINE HYDROCHLORIDE
     Indication: Muscle spasms
     Route: 048
     Dates: start: 20210823
  6. DURAGESIC [Concomitant]
     Active Substance: FENTANYL
     Indication: Product used for unknown indication
     Dosage: ONE PATCH ON SKIN EVERY THIRD DAY. MAXIMUM DAILY AMOUNT ONE PATCH?100 MCG/HR
     Route: 062
     Dates: start: 20220809, end: 20220809
  7. FLONASE [Concomitant]
     Active Substance: FLUTICASONE PROPIONATE
     Indication: Product used for unknown indication
     Dosage: SHAKE LIQUID AND USE TWO SPRAYS IN EACH NOSTRIL EVERYDAY?50 MCG/ACTUATION
     Route: 045
  8. BREO ELLIPTA [Concomitant]
     Active Substance: FLUTICASONE FUROATE\VILANTEROL TRIFENATATE
     Indication: Product used for unknown indication
     Dosage: 200-25 MCG/DOSE INHALER
     Dates: start: 20211115
  9. LASIX [Concomitant]
     Active Substance: FUROSEMIDE
     Indication: Product used for unknown indication
     Route: 048
     Dates: start: 20220707
  10. NEURONTIN [Concomitant]
     Active Substance: GABAPENTIN
     Indication: Pain
     Dosage: TWO CAPSULES 200 MG BY MOUTH THREE
     Route: 048
     Dates: start: 20220110
  11. LEVOTHYROXINE [Concomitant]
     Active Substance: LEVOTHYROXINE
     Indication: Product used for unknown indication
     Route: 048
     Dates: start: 20220406
  12. LISINOPRIL [Concomitant]
     Active Substance: LISINOPRIL
     Indication: Product used for unknown indication
     Route: 048
     Dates: start: 20211018
  13. TOPROL XL [Concomitant]
     Active Substance: METOPROLOL SUCCINATE
     Indication: Product used for unknown indication
     Dosage: 12.5 MG BY MOUTH. TAKING 1/2 OF 25MG TAB DAILY
     Route: 048
  14. NARCAN [Concomitant]
     Active Substance: NALOXONE HYDROCHLORIDE
     Indication: Product used for unknown indication
     Dosage: 4 MG/ACTUATION
     Route: 045
     Dates: start: 20210811
  15. PRILOSEC [Concomitant]
     Active Substance: OMEPRAZOLE MAGNESIUM
     Indication: Product used for unknown indication
     Dosage: 40 MG DELAYED RELEASE CAPSULE
     Route: 048
     Dates: start: 20220404
  16. ONDANSETRON [Concomitant]
     Active Substance: ONDANSETRON
     Indication: Nausea
     Dosage: DISSOLVE TWO DISPERSIBLE TABLETS EIGHT MG TOTAL ON TOP OF TONGUE EVERY EIGHT HOURS
     Route: 048
     Dates: start: 20210118
  17. ONDANSETRON [Concomitant]
     Active Substance: ONDANSETRON
     Indication: Vomiting
  18. PERCOCET [Concomitant]
     Active Substance: ACETAMINOPHEN\OXYCODONE HYDROCHLORIDE
     Indication: Pain
     Dosage: ONE-TWO TABLETS BY MOUTH EVERY FOUR HOURS IF NEEDED?10-325 MG PER TABLET
     Route: 048
     Dates: start: 20220809
  19. KLOR-CON M20 [Concomitant]
     Active Substance: POTASSIUM CHLORIDE
     Indication: Product used for unknown indication
     Dosage: 0.5 TABLETS 10 MEQ TOTAL BY MOUTH ONE TIME EACH DAY?20 MEQ CONTROLLED RELEASE TABLET
     Route: 048
     Dates: start: 20211220
  20. RANEXA [Concomitant]
     Active Substance: RANOLAZINE
     Indication: Product used for unknown indication
     Dosage: 500 MG 12 HOUR TABLET, 500 MG BY MOUTH ONE TIME EACH DAY
     Route: 048
     Dates: start: 20220805

REACTIONS (4)
  - Bone cancer [Unknown]
  - Iron deficiency anaemia [Unknown]
  - Iron deficiency [Unknown]
  - Dyspnoea exertional [Unknown]
